FAERS Safety Report 11704830 (Version 1)
Quarter: 2015Q4

REPORT INFORMATION
  Report Type: Other
  Country: CO (occurrence: CO)
  Receive Date: 20151106
  Receipt Date: 20151106
  Transmission Date: 20160304
  Serious: Yes (Other)
  Sender: FDA-Public Use
  Company Number: CO-SHIRE-CO201513668

PATIENT
  Sex: Female

DRUGS (1)
  1. VPRIV [Suspect]
     Active Substance: VELAGLUCERASE ALFA
     Indication: GAUCHER^S DISEASE
     Dosage: UNK, UNKNOWN, DOSE 8
     Route: 041
     Dates: start: 20130312

REACTIONS (2)
  - Aphasia [Unknown]
  - Hemiparesis [Unknown]

NARRATIVE: CASE EVENT DATE: 2015
